FAERS Safety Report 5656114-1 (Version None)
Quarter: 2008Q1

REPORT INFORMATION
  Report Type: 
  Country: None (occurrence: None)
  Receive Date: 20080305
  Receipt Date: 20080222
  Transmission Date: 20080703
  Serious: Yes (Death, Hospitalization)
  Sender: FDA-Public Use
  Company Number: L08-USA-00315-19

PATIENT
  Age: 37 Year
  Sex: Male

DRUGS (2)
  1. ESCITALOPRAM OXALATE [Suspect]
  2. COCAINE [Suspect]

REACTIONS (19)
  - AGGRESSION [None]
  - AGITATION [None]
  - BLOOD PH DECREASED [None]
  - BLOOD PRESSURE INCREASED [None]
  - BRAIN OEDEMA [None]
  - CARDIAC ARREST [None]
  - DELIRIUM [None]
  - DISSEMINATED INTRAVASCULAR COAGULATION [None]
  - DRUG TOXICITY [None]
  - ELECTROMECHANICAL DISSOCIATION [None]
  - HAEMODIALYSIS [None]
  - HEART RATE INCREASED [None]
  - HYPERHIDROSIS [None]
  - HYPERPYREXIA [None]
  - LIVER INJURY [None]
  - LOWER GASTROINTESTINAL HAEMORRHAGE [None]
  - MUCOSAL HAEMORRHAGE [None]
  - RENAL FAILURE [None]
  - RHABDOMYOLYSIS [None]
